FAERS Safety Report 7355598-0 (Version None)
Quarter: 2011Q1

REPORT INFORMATION
  Report Type: 
  Country: None (occurrence: None)
  Receive Date: 20110316
  Receipt Date: 20110309
  Transmission Date: 20110831
  Serious: Yes (Hospitalization, Other)
  Sender: FDA-Public Use
  Company Number: B0705564A

PATIENT
  Age: 63 Year
  Sex: Male

DRUGS (14)
  1. TOREM [Concomitant]
     Dosage: 200MG PER DAY
     Route: 048
  2. PANTOZOL [Concomitant]
     Dosage: 40MG PER DAY
     Route: 048
  3. VITAMIN D [Concomitant]
     Dosage: 15DROP PER DAY
     Route: 048
  4. ATACAND [Concomitant]
     Dosage: 12MG PER DAY
     Route: 048
  5. SODIUM POLYSTYRENE SULFONATE [Concomitant]
     Dosage: 15MG TWICE PER DAY
     Route: 048
  6. SORTIS [Concomitant]
     Dosage: 40MG PER DAY
     Route: 048
  7. BECOZYME [Concomitant]
     Route: 048
  8. CALCIUM ACETATE [Concomitant]
     Route: 048
  9. DIPIPERON [Concomitant]
     Dosage: 40MG PER DAY
     Route: 048
  10. ASPIRIN [Concomitant]
     Dosage: 100MG PER DAY
     Route: 048
  11. MULTIVITAMIN [Concomitant]
     Route: 048
  12. SYMBICORT [Concomitant]
     Route: 055
  13. VALTREX [Suspect]
     Indication: HERPES ZOSTER
     Dosage: 1G THREE TIMES PER DAY
     Route: 048
     Dates: start: 20100115
  14. VENTOLIN [Concomitant]
     Dosage: 100MCG AS REQUIRED
     Route: 055

REACTIONS (3)
  - TOXIC ENCEPHALOPATHY [None]
  - CONFUSIONAL STATE [None]
  - DISORIENTATION [None]
